FAERS Safety Report 14912937 (Version 1)
Quarter: 2018Q2

REPORT INFORMATION
  Report Type: Report from Study
  Country: FR (occurrence: FR)
  Receive Date: 20180518
  Receipt Date: 20180518
  Transmission Date: 20180711
  Serious: Yes (Other)
  Sender: FDA-Public Use
  Company Number: FR-ROCHE-2124112

PATIENT
  Age: 3 Year
  Sex: Male

DRUGS (4)
  1. RITUXIMAB. [Suspect]
     Active Substance: RITUXIMAB
     Indication: DIFFUSE LARGE B-CELL LYMPHOMA
     Dosage: TOTAL DOSE BEFORE EVENT ONSET OF 1075MG
     Route: 042
     Dates: start: 20130415, end: 20130415
  2. CYTARABINE. [Suspect]
     Active Substance: CYTARABINE
     Dosage: CYTARABIN HD - HIGH DOSE?TOTAL DOSE BEFORE EVENT ONSET OF 6800MG
     Route: 042
     Dates: start: 20130417, end: 20130420
  3. ETOPOSIDE. [Suspect]
     Active Substance: ETOPOSIDE
     Indication: DIFFUSE LARGE B-CELL LYMPHOMA
     Dosage: TOTAL DOSE BEFORE EVENT ONSET OF 440MG
     Route: 042
     Dates: start: 20130417, end: 20130420
  4. CYTARABINE. [Suspect]
     Active Substance: CYTARABINE
     Indication: DIFFUSE LARGE B-CELL LYMPHOMA
     Dosage: TOTAL DOSE BEFORE EVENT ONSET OF 140MG
     Route: 042
     Dates: start: 20130416, end: 20130420

REACTIONS (3)
  - Device related infection [Recovered/Resolved]
  - Catheter site inflammation [Recovered/Resolved]
  - Febrile bone marrow aplasia [Recovered/Resolved with Sequelae]

NARRATIVE: CASE EVENT DATE: 20130426
